FAERS Safety Report 11680581 (Version 3)
Quarter: 2015Q4

REPORT INFORMATION
  Report Type: Spontaneous
  Country: US (occurrence: US)
  Receive Date: 20151027
  Receipt Date: 20151110
  Transmission Date: 20160304
  Serious: No
  Sender: FDA-Public Use
  Company Number: US-ELI_LILLY_AND_COMPANY-US201010006734

PATIENT
  Age: 76 Year
  Sex: Female

DRUGS (6)
  1. FORTEO [Suspect]
     Active Substance: TERIPARATIDE
     Dosage: 20 UG, DAILY (1/D)
  2. FORTEO [Suspect]
     Active Substance: TERIPARATIDE
     Dosage: 20 UG, DAILY (1/D)
  3. FORTEO [Suspect]
     Active Substance: TERIPARATIDE
     Dosage: 20 UG, QD
     Dates: end: 201110
  4. COUMADIN [Concomitant]
     Active Substance: WARFARIN SODIUM
  5. FORTEO [Suspect]
     Active Substance: TERIPARATIDE
     Indication: OSTEOPOROSIS
     Dosage: 20 UG, DAILY (1/D)
     Dates: start: 20101014
  6. FORTEO [Suspect]
     Active Substance: TERIPARATIDE
     Dosage: 20 UG, DAILY (1/D)

REACTIONS (21)
  - Headache [Not Recovered/Not Resolved]
  - Injection site pain [Unknown]
  - Drug dose omission [Unknown]
  - Neuralgia [Unknown]
  - Injection site erythema [Not Recovered/Not Resolved]
  - Constipation [Unknown]
  - Intentional product misuse [Unknown]
  - Eye pain [Unknown]
  - Bone pain [Unknown]
  - Musculoskeletal discomfort [Unknown]
  - Temporomandibular joint syndrome [Unknown]
  - Contusion [Not Recovered/Not Resolved]
  - Neck pain [Unknown]
  - Dental care [Unknown]
  - Injection site bruising [Recovering/Resolving]
  - Pain in jaw [Not Recovered/Not Resolved]
  - Blood pressure increased [Unknown]
  - Fear [Unknown]
  - Nausea [Unknown]
  - Jaw disorder [Unknown]
  - Anxiety [Unknown]

NARRATIVE: CASE EVENT DATE: 201010
